FAERS Safety Report 25524116 (Version 1)
Quarter: 2025Q3

REPORT INFORMATION
  Report Type: Spontaneous
  Country: EU (occurrence: EU)
  Receive Date: 20250707
  Receipt Date: 20250707
  Transmission Date: 20251021
  Serious: Yes (Hospitalization)
  Sender: MYLAN
  Company Number: EU-ADIENNEP-2019AD000276

PATIENT
  Age: 38 Year
  Sex: Male
  Weight: 65 kg

DRUGS (76)
  1. BUSULFAN [Suspect]
     Active Substance: BUSULFAN
     Indication: Allogenic stem cell transplantation
     Dates: start: 20190102, end: 20190103
  2. BUSULFAN [Suspect]
     Active Substance: BUSULFAN
     Route: 042
     Dates: start: 20190102, end: 20190103
  3. BUSULFAN [Suspect]
     Active Substance: BUSULFAN
     Route: 042
     Dates: start: 20190102, end: 20190103
  4. BUSULFAN [Suspect]
     Active Substance: BUSULFAN
     Dates: start: 20190102, end: 20190103
  5. THIOTEPA [Suspect]
     Active Substance: THIOTEPA
     Indication: Allogenic stem cell transplantation
     Dates: start: 20181231, end: 20190101
  6. THIOTEPA [Suspect]
     Active Substance: THIOTEPA
     Route: 042
     Dates: start: 20181231, end: 20190101
  7. THIOTEPA [Suspect]
     Active Substance: THIOTEPA
     Route: 042
     Dates: start: 20181231, end: 20190101
  8. THIOTEPA [Suspect]
     Active Substance: THIOTEPA
     Dates: start: 20181231, end: 20190101
  9. FLUDARABINE [Suspect]
     Active Substance: FLUDARABINE PHOSPHATE
     Indication: Allogenic stem cell transplantation
     Dates: start: 20190102, end: 20190105
  10. FLUDARABINE [Suspect]
     Active Substance: FLUDARABINE PHOSPHATE
     Route: 042
     Dates: start: 20190102, end: 20190105
  11. FLUDARABINE [Suspect]
     Active Substance: FLUDARABINE PHOSPHATE
     Route: 042
     Dates: start: 20190102, end: 20190105
  12. FLUDARABINE [Suspect]
     Active Substance: FLUDARABINE PHOSPHATE
     Dates: start: 20190102, end: 20190105
  13. CELLCEPT [Suspect]
     Active Substance: MYCOPHENOLATE MOFETIL
     Indication: Product used for unknown indication
  14. CELLCEPT [Suspect]
     Active Substance: MYCOPHENOLATE MOFETIL
     Route: 065
  15. CELLCEPT [Suspect]
     Active Substance: MYCOPHENOLATE MOFETIL
     Route: 065
  16. CELLCEPT [Suspect]
     Active Substance: MYCOPHENOLATE MOFETIL
  17. CYCLOPHOSPHAMIDE [Suspect]
     Active Substance: CYCLOPHOSPHAMIDE
     Indication: Prophylaxis
     Dates: start: 20190110, end: 20190112
  18. CYCLOPHOSPHAMIDE [Suspect]
     Active Substance: CYCLOPHOSPHAMIDE
     Route: 042
     Dates: start: 20190110, end: 20190112
  19. CYCLOPHOSPHAMIDE [Suspect]
     Active Substance: CYCLOPHOSPHAMIDE
     Route: 042
     Dates: start: 20190110, end: 20190112
  20. CYCLOPHOSPHAMIDE [Suspect]
     Active Substance: CYCLOPHOSPHAMIDE
     Dates: start: 20190110, end: 20190112
  21. CYCLOSPORINE [Suspect]
     Active Substance: CYCLOSPORINE
     Indication: Immunosuppressant drug therapy
     Dosage: 100 MILLIGRAM, QD (2 DOSAGES 50 MG DAILY)
     Dates: start: 20190112
  22. CYCLOSPORINE [Suspect]
     Active Substance: CYCLOSPORINE
     Dosage: 100 MILLIGRAM, QD (2 DOSAGES 50 MG DAILY)
     Route: 048
     Dates: start: 20190112
  23. CYCLOSPORINE [Suspect]
     Active Substance: CYCLOSPORINE
     Dosage: 100 MILLIGRAM, QD (2 DOSAGES 50 MG DAILY)
     Route: 048
     Dates: start: 20190112
  24. CYCLOSPORINE [Suspect]
     Active Substance: CYCLOSPORINE
     Dosage: 100 MILLIGRAM, QD (2 DOSAGES 50 MG DAILY)
     Dates: start: 20190112
  25. VALACYCLOVIR HYDROCHLORIDE [Concomitant]
     Active Substance: VALACYCLOVIR HYDROCHLORIDE
     Indication: Infection prophylaxis
     Dosage: 1 GRAM, QD
     Dates: start: 20181231
  26. VALACYCLOVIR HYDROCHLORIDE [Concomitant]
     Active Substance: VALACYCLOVIR HYDROCHLORIDE
     Dosage: 1 GRAM, QD
     Route: 048
     Dates: start: 20181231
  27. VALACYCLOVIR HYDROCHLORIDE [Concomitant]
     Active Substance: VALACYCLOVIR HYDROCHLORIDE
     Dosage: 1 GRAM, QD
     Route: 048
     Dates: start: 20181231
  28. VALACYCLOVIR HYDROCHLORIDE [Concomitant]
     Active Substance: VALACYCLOVIR HYDROCHLORIDE
     Dosage: 1 GRAM, QD
     Dates: start: 20181231
  29. Clamoxyl [Concomitant]
     Indication: Infection prophylaxis
     Dosage: 1 GRAM, QD
     Dates: start: 20190128
  30. Clamoxyl [Concomitant]
     Dosage: 1 GRAM, QD
     Route: 048
     Dates: start: 20190128
  31. Clamoxyl [Concomitant]
     Dosage: 1 GRAM, QD
     Route: 048
     Dates: start: 20190128
  32. Clamoxyl [Concomitant]
     Dosage: 1 GRAM, QD
     Dates: start: 20190128
  33. FLUCONAZOLE [Concomitant]
     Active Substance: FLUCONAZOLE
     Indication: Antifungal prophylaxis
     Dosage: 400 MILLIGRAM, QD
     Dates: start: 20190107, end: 20190315
  34. FLUCONAZOLE [Concomitant]
     Active Substance: FLUCONAZOLE
     Dosage: 400 MILLIGRAM, QD
     Route: 048
     Dates: start: 20190107, end: 20190315
  35. FLUCONAZOLE [Concomitant]
     Active Substance: FLUCONAZOLE
     Dosage: 400 MILLIGRAM, QD
     Route: 048
     Dates: start: 20190107, end: 20190315
  36. FLUCONAZOLE [Concomitant]
     Active Substance: FLUCONAZOLE
     Dosage: 400 MILLIGRAM, QD
     Dates: start: 20190107, end: 20190315
  37. BACTRIM [Concomitant]
     Active Substance: SULFAMETHOXAZOLE\TRIMETHOPRIM
     Indication: Infection prophylaxis
     Dosage: 960 MILLIGRAM, QD
     Dates: start: 20190128
  38. BACTRIM [Concomitant]
     Active Substance: SULFAMETHOXAZOLE\TRIMETHOPRIM
     Dosage: 960 MILLIGRAM, QD
     Route: 048
     Dates: start: 20190128
  39. BACTRIM [Concomitant]
     Active Substance: SULFAMETHOXAZOLE\TRIMETHOPRIM
     Dosage: 960 MILLIGRAM, QD
     Route: 048
     Dates: start: 20190128
  40. BACTRIM [Concomitant]
     Active Substance: SULFAMETHOXAZOLE\TRIMETHOPRIM
     Dosage: 960 MILLIGRAM, QD
     Dates: start: 20190128
  41. URSODIOL [Concomitant]
     Active Substance: URSODIOL
     Indication: Prophylaxis
  42. URSODIOL [Concomitant]
     Active Substance: URSODIOL
     Route: 065
  43. URSODIOL [Concomitant]
     Active Substance: URSODIOL
     Route: 065
  44. URSODIOL [Concomitant]
     Active Substance: URSODIOL
  45. FOLIC ACID [Concomitant]
     Active Substance: FOLIC ACID
     Indication: Anaemia prophylaxis
     Dosage: 5 MILLIGRAM, QD
     Dates: start: 20190307
  46. FOLIC ACID [Concomitant]
     Active Substance: FOLIC ACID
     Dosage: 5 MILLIGRAM, QD
     Route: 048
     Dates: start: 20190307
  47. FOLIC ACID [Concomitant]
     Active Substance: FOLIC ACID
     Dosage: 5 MILLIGRAM, QD
     Route: 048
     Dates: start: 20190307
  48. FOLIC ACID [Concomitant]
     Active Substance: FOLIC ACID
     Dosage: 5 MILLIGRAM, QD
     Dates: start: 20190307
  49. NEURONTIN [Concomitant]
     Active Substance: GABAPENTIN
     Indication: Epilepsy
     Dosage: 600 MILLIGRAM, QD
     Dates: start: 20190206
  50. NEURONTIN [Concomitant]
     Active Substance: GABAPENTIN
     Dosage: 600 MILLIGRAM, QD
     Route: 048
     Dates: start: 20190206
  51. NEURONTIN [Concomitant]
     Active Substance: GABAPENTIN
     Dosage: 600 MILLIGRAM, QD
     Route: 048
     Dates: start: 20190206
  52. NEURONTIN [Concomitant]
     Active Substance: GABAPENTIN
     Dosage: 600 MILLIGRAM, QD
     Dates: start: 20190206
  53. PONATINIB [Concomitant]
     Active Substance: PONATINIB
     Indication: Immunomodulatory therapy
     Dosage: 15 MILLIGRAM, QD
     Dates: start: 20190315, end: 20190501
  54. PONATINIB [Concomitant]
     Active Substance: PONATINIB
     Dosage: 15 MILLIGRAM, QD
     Route: 048
     Dates: start: 20190315, end: 20190501
  55. PONATINIB [Concomitant]
     Active Substance: PONATINIB
     Dosage: 15 MILLIGRAM, QD
     Route: 048
     Dates: start: 20190315, end: 20190501
  56. PONATINIB [Concomitant]
     Active Substance: PONATINIB
     Dosage: 15 MILLIGRAM, QD
     Dates: start: 20190315, end: 20190501
  57. PIPERACILLIN SODIUM\TAZOBACTAM SODIUM [Concomitant]
     Active Substance: PIPERACILLIN SODIUM\TAZOBACTAM SODIUM
     Indication: Infection
     Dosage: 16 GRAM, QD
     Route: 042
     Dates: start: 20190113, end: 20190127
  58. PIPERACILLIN SODIUM\TAZOBACTAM SODIUM [Concomitant]
     Active Substance: PIPERACILLIN SODIUM\TAZOBACTAM SODIUM
     Dosage: 16 GRAM, QD
     Dates: start: 20190113, end: 20190127
  59. PIPERACILLIN SODIUM\TAZOBACTAM SODIUM [Concomitant]
     Active Substance: PIPERACILLIN SODIUM\TAZOBACTAM SODIUM
     Dosage: 16 GRAM, QD
     Dates: start: 20190113, end: 20190127
  60. PIPERACILLIN SODIUM\TAZOBACTAM SODIUM [Concomitant]
     Active Substance: PIPERACILLIN SODIUM\TAZOBACTAM SODIUM
     Dosage: 16 GRAM, QD
     Route: 042
     Dates: start: 20190113, end: 20190127
  61. PIPERACILLIN SODIUM\TAZOBACTAM SODIUM [Concomitant]
     Active Substance: PIPERACILLIN SODIUM\TAZOBACTAM SODIUM
     Dosage: 16 GRAM, QD
     Route: 042
     Dates: start: 20190129, end: 20190206
  62. PIPERACILLIN SODIUM\TAZOBACTAM SODIUM [Concomitant]
     Active Substance: PIPERACILLIN SODIUM\TAZOBACTAM SODIUM
     Dosage: 16 GRAM, QD
     Dates: start: 20190129, end: 20190206
  63. PIPERACILLIN SODIUM\TAZOBACTAM SODIUM [Concomitant]
     Active Substance: PIPERACILLIN SODIUM\TAZOBACTAM SODIUM
     Dosage: 16 GRAM, QD
     Dates: start: 20190129, end: 20190206
  64. PIPERACILLIN SODIUM\TAZOBACTAM SODIUM [Concomitant]
     Active Substance: PIPERACILLIN SODIUM\TAZOBACTAM SODIUM
     Dosage: 16 GRAM, QD
     Route: 042
     Dates: start: 20190129, end: 20190206
  65. VANCOMYCIN [Concomitant]
     Active Substance: VANCOMYCIN
     Indication: Infection
     Dosage: 2 G DAILY
     Dates: start: 20190114, end: 20190115
  66. VANCOMYCIN [Concomitant]
     Active Substance: VANCOMYCIN
     Dosage: 2 G DAILY
     Dates: start: 20190114, end: 20190115
  67. VANCOMYCIN [Concomitant]
     Active Substance: VANCOMYCIN
     Dosage: 2 G DAILY
     Route: 042
     Dates: start: 20190114, end: 20190115
  68. VANCOMYCIN [Concomitant]
     Active Substance: VANCOMYCIN
     Dosage: 2 G DAILY
     Route: 042
     Dates: start: 20190114, end: 20190115
  69. VANCOMYCIN [Concomitant]
     Active Substance: VANCOMYCIN
     Dosage: 2 G DAILY
     Dates: start: 20190116, end: 20190121
  70. VANCOMYCIN [Concomitant]
     Active Substance: VANCOMYCIN
     Dosage: 2 G DAILY
     Dates: start: 20190116, end: 20190121
  71. VANCOMYCIN [Concomitant]
     Active Substance: VANCOMYCIN
     Dosage: 2 G DAILY
     Route: 042
     Dates: start: 20190116, end: 20190121
  72. VANCOMYCIN [Concomitant]
     Active Substance: VANCOMYCIN
     Dosage: 2 G DAILY
     Route: 042
     Dates: start: 20190116, end: 20190121
  73. CYCLOSPORINE [Concomitant]
     Active Substance: CYCLOSPORINE
     Indication: Immunosuppressant drug therapy
     Dosage: 150 MILLIGRAM, QD (2 DOSAGES 75 MG DAILY)
     Dates: start: 201905
  74. CYCLOSPORINE [Concomitant]
     Active Substance: CYCLOSPORINE
     Dosage: 150 MILLIGRAM, QD (2 DOSAGES 75 MG DAILY)
     Route: 048
     Dates: start: 201905
  75. CYCLOSPORINE [Concomitant]
     Active Substance: CYCLOSPORINE
     Dosage: 150 MILLIGRAM, QD (2 DOSAGES 75 MG DAILY)
     Route: 048
     Dates: start: 201905
  76. CYCLOSPORINE [Concomitant]
     Active Substance: CYCLOSPORINE
     Dosage: 150 MILLIGRAM, QD (2 DOSAGES 75 MG DAILY)
     Dates: start: 201905

REACTIONS (1)
  - Chronic graft versus host disease [Recovered/Resolved]

NARRATIVE: CASE EVENT DATE: 20190512
